FAERS Safety Report 10557190 (Version 1)
Quarter: 2014Q4

REPORT INFORMATION
  Report Type: Spontaneous
  Country: US (occurrence: None)
  Receive Date: 20141030
  Receipt Date: 20141030
  Transmission Date: 20150529
  Serious: Yes (Hospitalization)
  Sender: FDA-Public Use
  Company Number: None

PATIENT
  Age: 19 Year
  Sex: Female
  Weight: 63.3 kg

DRUGS (5)
  1. ONDANSETRON [Concomitant]
     Active Substance: ONDANSETRON
  2. DIPHENHYDRAMINE 50 MG/ML [Suspect]
     Active Substance: DIPHENHYDRAMINE
     Indication: HEADACHE
     Dosage: DATE OF USE: ONCE, 50 MG/ML, ONCE, INTRAVENOUS
     Route: 042
  3. DIPHENHYDRAMINE 50 MG/ML [Suspect]
     Active Substance: DIPHENHYDRAMINE
     Indication: NAUSEA
     Dosage: DATE OF USE: ONCE, 50 MG/ML, ONCE, INTRAVENOUS
     Route: 042
  4. DIPHENHYDRAMINE [Concomitant]
     Active Substance: DIPHENHYDRAMINE
  5. KETOROLAC [Concomitant]
     Active Substance: KETOROLAC\KETOROLAC TROMETHAMINE

REACTIONS (2)
  - Oxygen saturation decreased [None]
  - Seizure [None]

NARRATIVE: CASE EVENT DATE: 20141014
